FAERS Safety Report 20731224 (Version 2)
Quarter: 2022Q2

REPORT INFORMATION
  Report Type: Spontaneous
  Country: JP (occurrence: JP)
  Receive Date: 20220420
  Receipt Date: 20220615
  Transmission Date: 20220721
  Serious: Yes (Hospitalization)
  Sender: FDA-Public Use
  Company Number: JP-JNJFOC-20220434199

PATIENT
  Age: 18 Year
  Sex: Female
  Weight: 39 kg

DRUGS (20)
  1. OPSUMIT [Suspect]
     Active Substance: MACITENTAN
     Indication: Pulmonary arterial hypertension
     Dosage: IN THE MORNING
     Route: 048
     Dates: start: 20170623
  2. EPOPROSTENOL [Suspect]
     Active Substance: EPOPROSTENOL
     Indication: Pulmonary arterial hypertension
     Dosage: 1.5MGX2VIAL/DAY
     Route: 041
     Dates: start: 20170711, end: 20180613
  3. EPOPROSTENOL [Suspect]
     Active Substance: EPOPROSTENOL
     Dosage: 1.5MGX2VIAL,0.5MGX2VIAL/DAY
     Route: 041
     Dates: start: 20180614, end: 20181117
  4. EPOPROSTENOL [Suspect]
     Active Substance: EPOPROSTENOL
     Dosage: 1.5MGX4VIAL/DAY
     Route: 041
     Dates: start: 20181118
  5. EPOPROSTENOL [Suspect]
     Active Substance: EPOPROSTENOL
     Dosage: 6.5MG/100ML,3.2ML/HR
     Route: 041
     Dates: end: 202105
  6. EPOPROSTENOL [Suspect]
     Active Substance: EPOPROSTENOL
     Dosage: DOSE UNKNOWN,GRADUALLY DECREASED
     Route: 041
     Dates: start: 202105, end: 20210603
  7. EPOPROSTENOL [Suspect]
     Active Substance: EPOPROSTENOL
     Dosage: 1.5MGX2VIAL/DAY
     Route: 041
     Dates: start: 20171220, end: 20180613
  8. EPOPROSTENOL [Suspect]
     Active Substance: EPOPROSTENOL
     Dosage: 6.5MG/100ML,3.2ML/HR
     Route: 041
     Dates: end: 20210526
  9. EPOPROSTENOL [Suspect]
     Active Substance: EPOPROSTENOL
     Dosage: DOSE UNKNOWN,GRADUALLY DECREASED
     Route: 041
     Dates: start: 20210527, end: 20210603
  10. ADCIRCA [Concomitant]
     Active Substance: TADALAFIL
     Indication: Pulmonary arterial hypertension
     Route: 048
     Dates: start: 20170805
  11. ADCIRCA [Concomitant]
     Active Substance: TADALAFIL
     Route: 048
  12. METHIMAZOLE [Concomitant]
     Active Substance: METHIMAZOLE
     Indication: Basedow^s disease
     Route: 048
     Dates: start: 20190129, end: 20190717
  13. METHIMAZOLE [Concomitant]
     Active Substance: METHIMAZOLE
     Route: 048
     Dates: start: 20190718
  14. CINAL [ASCORBIC ACID;CALCIUM PANTOTHENATE] [Concomitant]
     Dosage: DOSE UNKNOWN
     Route: 048
  15. TORSEMIDE [Concomitant]
     Active Substance: TORSEMIDE
     Dosage: DOSE UNKNOWN
     Route: 048
  16. NIFEDIPINE [Concomitant]
     Active Substance: NIFEDIPINE
     Dosage: DOSE UNKNOWN
     Route: 048
  17. FLUTICASONE FUROATE [Concomitant]
     Active Substance: FLUTICASONE FUROATE
     Route: 045
  18. LEVOCETIRIZINE HYDROCHLORIDE OD [Concomitant]
     Dosage: DOSE UNKNOWN
     Route: 048
  19. LEVOTHYROXINE SODIUM [Concomitant]
     Active Substance: LEVOTHYROXINE SODIUM
     Route: 048
  20. SODIUM FERROUS CITRATE [Concomitant]
     Active Substance: SODIUM FERROUS CITRATE
     Dosage: DOSE UNKNOWN
     Route: 048

REACTIONS (3)
  - Thrombocytopenia [Recovering/Resolving]
  - Cardiac failure [Recovering/Resolving]
  - Epistaxis [Recovered/Resolved]

NARRATIVE: CASE EVENT DATE: 20210401
